FAERS Safety Report 17770457 (Version 1)
Quarter: 2020Q2

REPORT INFORMATION
  Report Type: Spontaneous
  Country: GB (occurrence: GB)
  Receive Date: 20200512
  Receipt Date: 20200512
  Transmission Date: 20200714
  Serious: Yes (Hospitalization)
  Sender: FDA-Public Use
  Company Number: GB-PFIZER INC-GBWYE495311MAR05

PATIENT
  Age: 33 Year
  Sex: Male
  Weight: 55.7 kg

DRUGS (2)
  1. GENTAMICIN SULFATE. [Suspect]
     Active Substance: GENTAMICIN SULFATE
     Dosage: 160 MG, 2X/DAY
     Route: 042
     Dates: start: 20050204, end: 20050218
  2. TAZOCIN [Suspect]
     Active Substance: PIPERACILLIN SODIUM\TAZOBACTAM SODIUM
     Indication: CYSTIC FIBROSIS
     Dosage: 6.8 G, 3X/DAY
     Route: 042
     Dates: start: 20050204, end: 20050218

REACTIONS (5)
  - Pyrexia [Recovering/Resolving]
  - Pruritus [Recovering/Resolving]
  - Lymphocyte count decreased [Recovering/Resolving]
  - White blood cell count decreased [Recovering/Resolving]
  - Rash maculo-papular [Recovering/Resolving]

NARRATIVE: CASE EVENT DATE: 20050213
